FAERS Safety Report 12851838 (Version 1)
Quarter: 2016Q4

REPORT INFORMATION
  Report Type: Spontaneous
  Country: TW (occurrence: TW)
  Receive Date: 20161017
  Receipt Date: 20161017
  Transmission Date: 20170207
  Serious: Yes (Other)
  Sender: FDA-Public Use
  Company Number: TW-SCIEGEN PHARMACEUTICALS INC-2016SCILIT00491

PATIENT
  Age: 83 Year
  Sex: Male

DRUGS (2)
  1. CLOPIDOGREL [Suspect]
     Active Substance: CLOPIDOGREL BISULFATE
     Indication: CORONARY ARTERIAL STENT INSERTION
     Dosage: 75 MG, QD
     Route: 065
  2. ASPIRIN. [Concomitant]
     Active Substance: ASPIRIN
     Indication: CORONARY ARTERIAL STENT INSERTION
     Dosage: 100 MG, QD
     Route: 065

REACTIONS (6)
  - Abdominal discomfort [Unknown]
  - Dyspnoea [Unknown]
  - Pyrexia [Recovering/Resolving]
  - Decreased appetite [Unknown]
  - Neutropenia [Recovering/Resolving]
  - Malaise [Recovering/Resolving]
